FAERS Safety Report 4826970-5 (Version None)
Quarter: 2005Q4

REPORT INFORMATION
  Report Type: 
  Country: None (occurrence: None)
  Receive Date: 20051014
  Receipt Date: 20050714
  Transmission Date: 20060501
  Serious: No
  Sender: FDA-Public Use
  Company Number: 2005SP000745

PATIENT
  Age: 76 Year
  Sex: Male
  Weight: 86.1834 kg

DRUGS (6)
  1. LUNESTA [Suspect]
     Indication: INSOMNIA
     Dosage: 1 MG;HS;ORAL, 2 MG;HS;ORAL
     Route: 048
     Dates: start: 20050511, end: 20050511
  2. LUNESTA [Suspect]
     Indication: INSOMNIA
     Dosage: 1 MG;HS;ORAL, 2 MG;HS;ORAL
     Route: 048
     Dates: start: 20050512
  3. GLYBURIDE [Concomitant]
  4. COREG [Concomitant]
  5. HYTRIN [Concomitant]
  6. TRAZODONE HCL [Concomitant]

REACTIONS (1)
  - INSOMNIA [None]
